FAERS Safety Report 24290851 (Version 3)
Quarter: 2024Q3

REPORT INFORMATION
  Report Type: Spontaneous
  Country: GR (occurrence: GR)
  Receive Date: 20240906
  Receipt Date: 20240918
  Transmission Date: 20241016
  Serious: Yes (Life-Threatening, Hospitalization)
  Sender: PFIZER
  Company Number: GR-PFIZER INC-PV202400116544

PATIENT
  Age: 31 Year
  Sex: Male
  Weight: 53 kg

DRUGS (4)
  1. OXBRYTA [Suspect]
     Active Substance: VOXELOTOR
     Indication: Sickle cell disease
     Dosage: 1500 MG
     Route: 048
     Dates: start: 20240612, end: 20240715
  2. DESFERAL MESYLATE [Concomitant]
     Indication: Iron overload
     Dosage: 47 MG/KG
     Route: 058
     Dates: start: 20120101
  3. HYDROXYUREA [Concomitant]
     Active Substance: HYDROXYUREA
     Indication: Sickle cell disease
     Dosage: 23 MG/KG
     Dates: start: 20201001
  4. EXJADE [Concomitant]
     Active Substance: DEFERASIROX
     Indication: Iron overload
     Dosage: 27 MG/KG
     Route: 048
     Dates: start: 20111111

REACTIONS (5)
  - Haemophagocytic lymphohistiocytosis [Not Recovered/Not Resolved]
  - Sickle cell anaemia with crisis [Not Recovered/Not Resolved]
  - Acute chest syndrome [Not Recovered/Not Resolved]
  - Pulmonary embolism [Recovered/Resolved]
  - Pyrexia [Recovered/Resolved]

NARRATIVE: CASE EVENT DATE: 20240715
